FAERS Safety Report 4364370-5 (Version None)
Quarter: 2004Q2

REPORT INFORMATION
  Report Type: 
  Country: None (occurrence: None)
  Receive Date: 20040519
  Receipt Date: 20040506
  Transmission Date: 20050107
  Serious: Yes (Hospitalization, Other)
  Sender: FDA-Public Use
  Company Number: 2004009610

PATIENT
  Age: 49 Year
  Sex: Female

DRUGS (2)
  1. ZITHROMAX [Suspect]
     Indication: BRONCHITIS
     Dosage: ORAL
     Route: 048
     Dates: start: 20040204
  2. PRAVASTATIN SODIUM [Concomitant]

REACTIONS (4)
  - COUGH [None]
  - DYSPNOEA [None]
  - RESPIRATORY TRACT CONGESTION [None]
  - SUPRAVENTRICULAR TACHYCARDIA [None]
